FAERS Safety Report 8612358-8 (Version None)
Quarter: 2012Q3

REPORT INFORMATION
  Report Type: 
  Country: None (occurrence: None)
  Receive Date: 20120822
  Receipt Date: 20120810
  Transmission Date: 20120928
  Serious: No
  Sender: FDA-Public Use
  Company Number: US-ASTRAZENECA-2012SE56721

PATIENT
  Sex: Female

DRUGS (2)
  1. SEROQUEL [Suspect]
     Route: 048
  2. NEXIUM [Suspect]
     Route: 048

REACTIONS (8)
  - SPEECH DISORDER [None]
  - CROHN'S DISEASE [None]
  - ADVERSE DRUG REACTION [None]
  - AGITATION [None]
  - DRUG DOSE OMISSION [None]
  - GENERAL PHYSICAL HEALTH DETERIORATION [None]
  - CARDIAC DISORDER [None]
  - DISTURBANCE IN ATTENTION [None]
